FAERS Safety Report 10582783 (Version 6)
Quarter: 2015Q1

REPORT INFORMATION
  Report Type: Report from Study
  Country: US (occurrence: US)
  Receive Date: 20141113
  Receipt Date: 20150119
  Transmission Date: 20150720
  Serious: Yes (Life-Threatening, Hospitalization, Other)
  Sender: FDA-Public Use
  Company Number: US-MYLANLABS-2014SP005158

PATIENT

DRUGS (6)
  1. CYTARABINE. [Suspect]
     Active Substance: CYTARABINE
     Indication: ACUTE MYELOID LEUKAEMIA
     Dosage: 20 MG, BID
     Route: 058
     Dates: start: 20140825, end: 20140905
  2. CIPROFLOXACIN. [Concomitant]
     Active Substance: CIPROFLOXACIN
     Indication: ANTIBIOTIC PROPHYLAXIS
     Dosage: 500 MG, BID
     Route: 048
     Dates: start: 20140825, end: 20140831
  3. ACYCLOVIR                          /00587301/ [Concomitant]
     Active Substance: ACYCLOVIR
     Indication: ANTIBIOTIC PROPHYLAXIS
     Dosage: 400 MG, BID
     Route: 048
     Dates: start: 20140822
  4. PROTONIX [Concomitant]
     Active Substance: PANTOPRAZOLE SODIUM
     Indication: GASTROOESOPHAGEAL REFLUX DISEASE
     Dosage: 40 MG, QD
     Route: 048
     Dates: start: 20140825
  5. ULTRAM [Concomitant]
     Active Substance: TRAMADOL HYDROCHLORIDE
     Indication: PAIN
     Dosage: 50 MG, UNK
     Route: 048
     Dates: start: 20140822, end: 20140915
  6. APRESOLINE HYDROCHLORIDE [Concomitant]
     Active Substance: HYDRALAZINE HYDROCHLORIDE
     Indication: HYPERTENSION
     Dosage: 25 MG, TID
     Route: 048
     Dates: start: 20140825, end: 20140913

REACTIONS (4)
  - Respiratory distress [Recovered/Resolved]
  - Febrile neutropenia [Recovered/Resolved]
  - Cardiac arrest [Recovered/Resolved]
  - Systemic candida [Recovered/Resolved]

NARRATIVE: CASE EVENT DATE: 20140830
